FAERS Safety Report 25754935 (Version 1)
Quarter: 2025Q3

REPORT INFORMATION
  Report Type: Spontaneous
  Country: EU (occurrence: EU)
  Receive Date: 20250903
  Receipt Date: 20250903
  Transmission Date: 20251021
  Serious: Yes (Hospitalization)
  Sender: RANBAXY
  Company Number: EU-AFSSAPS-MP2025000787

PATIENT
  Age: 67 Year
  Sex: Male
  Weight: 105 kg

DRUGS (2)
  1. ERTAPENEM [Suspect]
     Active Substance: ERTAPENEM
     Indication: Klebsiella infection
     Dosage: 1 GRAM, QD
     Route: 040
     Dates: start: 20250423, end: 20250430
  2. MEROPENEM [Concomitant]
     Active Substance: MEROPENEM
     Indication: Klebsiella infection
     Dosage: 2 GRAM, TID
     Route: 040
     Dates: start: 20250420, end: 20250422

REACTIONS (2)
  - Encephalopathy [Recovering/Resolving]
  - Acute kidney injury [Recovering/Resolving]
